FAERS Safety Report 7772581-1 (Version None)
Quarter: 2011Q3

REPORT INFORMATION
  Report Type: 
  Country: None (occurrence: None)
  Receive Date: 20110922
  Receipt Date: 20100809
  Transmission Date: 20111222
  Serious: No
  Sender: FDA-Public Use
  Company Number: US-ASTRAZENECA-2008UW08961

PATIENT
  Age: 506 Month
  Sex: Male
  Weight: 118.8 kg

DRUGS (11)
  1. SEROQUEL [Suspect]
     Dosage: 100-300 MG
     Route: 048
     Dates: start: 20011218
  2. SEROQUEL [Suspect]
     Dosage: 100-300 MG
     Route: 048
     Dates: start: 20011218
  3. ZYPREXA [Concomitant]
     Indication: DEPRESSION
     Dates: start: 20030107, end: 20040114
  4. SEROQUEL [Suspect]
     Indication: ANXIETY
     Dosage: 100 MG TO 600 MG
     Route: 048
     Dates: start: 19990601
  5. SEROQUEL [Suspect]
     Indication: INSOMNIA
     Dosage: 100 MG TO 600 MG
     Route: 048
     Dates: start: 19990601
  6. SEROQUEL [Suspect]
     Dosage: 100-300 MG
     Route: 048
     Dates: start: 20011218
  7. DEPAKOTE [Concomitant]
     Dates: start: 20011124
  8. SEROQUEL [Suspect]
     Indication: DEPRESSION
     Dosage: 100 MG TO 600 MG
     Route: 048
     Dates: start: 19990601
  9. ZYPREXA [Concomitant]
     Indication: INSOMNIA
     Dates: start: 20030107, end: 20040114
  10. SEROQUEL [Suspect]
     Dosage: 100-300 MG
     Route: 048
     Dates: start: 20011218
  11. SEROQUEL [Suspect]
     Indication: BIPOLAR DISORDER
     Dosage: 100 MG TO 600 MG
     Route: 048
     Dates: start: 19990601

REACTIONS (5)
  - DIABETIC COMPLICATION [None]
  - TYPE 2 DIABETES MELLITUS [None]
  - BLOOD PRESSURE [None]
  - NERVE INJURY [None]
  - OBESITY [None]
